FAERS Safety Report 10642251 (Version 4)
Quarter: 2014Q4

REPORT INFORMATION
  Report Type: Spontaneous
  Country: IT (occurrence: IT)
  Receive Date: 20141210
  Receipt Date: 20141224
  Transmission Date: 20150529
  Serious: Yes (Other)
  Sender: FDA-Public Use
  Company Number: IT-ACCORD-027358

PATIENT
  Age: 3 Year
  Sex: Male

DRUGS (11)
  1. LASIX [Concomitant]
     Active Substance: FUROSEMIDE
     Indication: PRODUCT USED FOR UNKNOWN INDICATION
  2. RANITIDINE [Concomitant]
     Active Substance: RANITIDINE\RANITIDINE HYDROCHLORIDE
  3. ZYLORIC [Concomitant]
     Active Substance: ALLOPURINOL
  4. TAZOCIN [Concomitant]
     Active Substance: PIPERACILLIN SODIUM\TAZOBACTAM SODIUM
  5. ETOPOSIDE. [Suspect]
     Active Substance: ETOPOSIDE
     Indication: ACUTE MYELOID LEUKAEMIA
     Dosage: LAST DOSE ADMINISTRATION ON 21-SEP-2014 (DURATION: 5 DAYS).
     Route: 042
     Dates: start: 20140917
  6. CYTARABINE HYDROCHLORIDE [Suspect]
     Active Substance: CYTARABINE HYDROCHLORIDE
     Indication: ACUTE MYELOID LEUKAEMIA
     Dosage: LAST DOSE ADMINISTRATION ON 23-SEP-2014 (DURATION: 7 DAYS).
     Route: 042
     Dates: start: 20140917
  7. ZOVIRAX [Concomitant]
     Active Substance: ACYCLOVIR
  8. BACTRIM [Concomitant]
     Active Substance: SULFAMETHOXAZOLE\TRIMETHOPRIM
  9. ZAVEDOS [Suspect]
     Active Substance: IDARUBICIN
     Indication: ACUTE MYELOID LEUKAEMIA
     Dosage: LAST DOSE ADMINISTRATION ON 19-SEP-2014 (DURATION: 3 DAYS).
     Route: 042
     Dates: start: 20140917
  10. DIFLUCAN [Concomitant]
     Active Substance: FLUCONAZOLE
  11. MYCOSTATIN [Concomitant]
     Active Substance: NYSTATIN

REACTIONS (9)
  - Abdominal pain [Recovered/Resolved]
  - Mucosal inflammation [Not Recovered/Not Resolved]
  - Haematemesis [Not Recovered/Not Resolved]
  - Product use issue [Unknown]
  - Glossitis [Not Recovered/Not Resolved]
  - Diarrhoea [Recovered/Resolved]
  - Vomiting [Recovering/Resolving]
  - Decreased appetite [Recovering/Resolving]
  - Productive cough [Not Recovered/Not Resolved]

NARRATIVE: CASE EVENT DATE: 20140920
